FAERS Safety Report 4330560-0 (Version None)
Quarter: 2004Q2

REPORT INFORMATION
  Report Type: 
  Country: None (occurrence: None)
  Receive Date: 20040402
  Receipt Date: 20030212
  Transmission Date: 20050107
  Serious: Yes (Other)
  Sender: FDA-Public Use
  Company Number: PHEH2003US01504

PATIENT
  Age: 65 Year
  Sex: Female

DRUGS (16)
  1. AREDIA [Suspect]
     Indication: BREAST CANCER
     Dosage: 90 MG, QMO
     Dates: start: 19980201, end: 20030101
  2. NEXIUM [Concomitant]
  3. WARFARIN SODIUM [Concomitant]
     Dosage: 2 MG, QD
  4. ADVAIR DISKUS 100/50 [Concomitant]
     Dosage: 2PUFFS/BID
  5. TAXOTERE [Concomitant]
  6. TRASTUZUMAB [Concomitant]
  7. PROCRIT [Concomitant]
     Dosage: UNK, PRN
  8. AROMASIN [Concomitant]
  9. DIURETICS [Concomitant]
  10. DECADRON [Concomitant]
  11. FAMOTIDINE [Concomitant]
  12. SLOW-FE [Concomitant]
  13. LACTOBACILLUS ACIDOPHILUS [Concomitant]
  14. VITAMIN C [Concomitant]
  15. CALCIUM [Concomitant]
  16. MULTI-VITAMINS [Concomitant]

REACTIONS (18)
  - ASEPTIC NECROSIS BONE [None]
  - BONE DEBRIDEMENT [None]
  - BONE DISORDER [None]
  - DENTAL OPERATION [None]
  - FALL [None]
  - FISTULA [None]
  - IMPAIRED HEALING [None]
  - INFECTION [None]
  - JAW FRACTURE [None]
  - LOCAL SWELLING [None]
  - OPEN REDUCTION OF FRACTURE [None]
  - ORAL SURGERY [None]
  - OSTEONECROSIS [None]
  - PAIN [None]
  - PATHOLOGICAL FRACTURE [None]
  - SEQUESTRECTOMY [None]
  - TOOTH EXTRACTION [None]
  - WOUND SECRETION [None]
